FAERS Safety Report 14369471 (Version 1)
Quarter: 2018Q1

REPORT INFORMATION
  Report Type: Spontaneous
  Country: JP (occurrence: JP)
  Receive Date: 20180110
  Receipt Date: 20180110
  Transmission Date: 20180509
  Serious: Yes (Death, Life-Threatening, Hospitalization)
  Sender: FDA-Public Use
  Company Number: JP-ROCHE-1973957

PATIENT
  Age: 73 Year
  Sex: Male
  Weight: 63 kg

DRUGS (9)
  1. AVASTIN [Suspect]
     Active Substance: BEVACIZUMAB
     Indication: RECTAL CANCER
     Dosage: TREATMENT LINE: 2ND-3
     Route: 041
     Dates: start: 20170413, end: 20170503
  2. DEXART [Concomitant]
     Active Substance: DEXAMETHASONE SODIUM PHOSPHATE
     Dosage: DOSAGE IS UNCERTAIN.
     Route: 065
     Dates: start: 20170413, end: 20170719
  3. AVASTIN [Suspect]
     Active Substance: BEVACIZUMAB
     Dosage: TREATMENT LINE: 2ND-5
     Route: 041
     Dates: start: 20170608, end: 20170628
  4. AMLODIN [Concomitant]
     Active Substance: AMLODIPINE BESYLATE
     Dosage: DOSAGE IS UNCERTAIN.
     Route: 065
     Dates: start: 20170408, end: 20170726
  5. AVASTIN [Suspect]
     Active Substance: BEVACIZUMAB
     Dosage: TREATMENT LINE: 2ND-4
     Route: 041
     Dates: start: 20170511, end: 20170531
  6. AVASTIN [Suspect]
     Active Substance: BEVACIZUMAB
     Dosage: TREATMENT LINE: 2ND-6
     Route: 041
     Dates: start: 20170629, end: 20170719
  7. TS-1 [Suspect]
     Active Substance: GIMERACIL\OTERACIL\TEGAFUR
     Indication: RECTAL CANCER
     Route: 048
     Dates: start: 20170413, end: 20170719
  8. ELPLAT [Suspect]
     Active Substance: OXALIPLATIN
     Indication: RECTAL CANCER
     Route: 041
     Dates: start: 20170413, end: 20170719
  9. NASEA [Concomitant]
     Active Substance: RAMOSETRON HYDROCHLORIDE
     Dosage: DOSAGE IS UNCERTAIN.
     Route: 065
     Dates: start: 20170413, end: 20170719

REACTIONS (6)
  - Upper gastrointestinal haemorrhage [Fatal]
  - Acute kidney injury [Recovering/Resolving]
  - Gastrointestinal haemorrhage [Fatal]
  - Haemorrhage subcutaneous [Not Recovered/Not Resolved]
  - Fibrin D dimer increased [Unknown]
  - Epistaxis [Unknown]

NARRATIVE: CASE EVENT DATE: 20170727
